FAERS Safety Report 20886530 (Version 4)
Quarter: 2023Q2

REPORT INFORMATION
  Report Type: Report from Study
  Country: CA (occurrence: CA)
  Receive Date: 20220527
  Receipt Date: 20230523
  Transmission Date: 20230721
  Serious: Yes (Other)
  Sender: FDA-Public Use
  Company Number: CA-NOVARTISPH-NVSC2022CA037796

PATIENT
  Age: 58 Year
  Sex: Male

DRUGS (2)
  1. MAYZENT [Suspect]
     Active Substance: SIPONIMOD
     Indication: Secondary progressive multiple sclerosis
     Dosage: 2 MG, QD
     Route: 048
     Dates: start: 20220208
  2. PREDNISONE [Concomitant]
     Active Substance: PREDNISONE
     Indication: Product used for unknown indication
     Dosage: UNK, (FOR 3 DAYS DATES APPROX NOV 25-27)
     Route: 065

REACTIONS (17)
  - Cataract [Unknown]
  - Multiple sclerosis relapse [Unknown]
  - Hypoaesthesia [Unknown]
  - Hypoaesthesia oral [Unknown]
  - Electric shock sensation [Unknown]
  - Insomnia [Recovered/Resolved]
  - Pain [Recovered/Resolved]
  - Eye pain [Recovered/Resolved]
  - Facial pain [Unknown]
  - Ear pain [Unknown]
  - Throat irritation [Recovering/Resolving]
  - Oxygen saturation decreased [Unknown]
  - Asthenia [Unknown]
  - Hepatic enzyme increased [Recovering/Resolving]
  - Fatigue [Unknown]
  - Pain in extremity [Recovered/Resolved]
  - Headache [Recovered/Resolved]

NARRATIVE: CASE EVENT DATE: 20220208
